FAERS Safety Report 16931521 (Version 3)
Quarter: 2019Q4

REPORT INFORMATION
  Report Type: Report from Study
  Country: US (occurrence: US)
  Receive Date: 20191017
  Receipt Date: 20191224
  Transmission Date: 20200122
  Serious: Yes (Other)
  Sender: FDA-Public Use
  Company Number: NVSC2019US004311

PATIENT
  Sex: Female

DRUGS (2)
  1. GILENYA [Suspect]
     Active Substance: FINGOLIMOD HYDROCHLORIDE
     Indication: MULTIPLE SCLEROSIS
     Dosage: 0.5 MG, QD
     Route: 048
     Dates: start: 20190809
  2. TECFIDERA [Suspect]
     Active Substance: DIMETHYL FUMARATE
     Indication: MULTIPLE SCLEROSIS
     Dosage: UNK
     Route: 065

REACTIONS (17)
  - Depression [Recovering/Resolving]
  - Stenosis [Unknown]
  - Trichorrhexis [Unknown]
  - Gait disturbance [Unknown]
  - Panic attack [Unknown]
  - Insomnia [Unknown]
  - Contusion [Unknown]
  - Memory impairment [Recovering/Resolving]
  - Multiple sclerosis relapse [Not Recovered/Not Resolved]
  - Pain [Unknown]
  - Speech disorder [Unknown]
  - Weight increased [Unknown]
  - Onychoclasis [Unknown]
  - Drug ineffective [Unknown]
  - Depressed mood [Unknown]
  - Rash [Unknown]
  - Fall [Unknown]
